FAERS Safety Report 11708686 (Version 1)
Quarter: 2015Q4

REPORT INFORMATION
  Report Type: Spontaneous
  Country: US (occurrence: US)
  Receive Date: 20151104
  Receipt Date: 20151104
  Transmission Date: 20160304
  Serious: No
  Sender: FDA-Public Use
  Company Number: US-ELI_LILLY_AND_COMPANY-US201108003887

PATIENT
  Sex: Female

DRUGS (3)
  1. FORTEO [Suspect]
     Active Substance: TERIPARATIDE
     Indication: OSTEOARTHRITIS
     Dosage: 20 UG, QD
     Route: 065
     Dates: start: 201105
  2. PREDNISONE. [Concomitant]
     Active Substance: PREDNISONE
     Indication: POLYMYALGIA RHEUMATICA
  3. FORTEO [Suspect]
     Active Substance: TERIPARATIDE
     Dosage: 20 UG, QD
     Route: 065
     Dates: end: 2011

REACTIONS (18)
  - Malaise [Recovering/Resolving]
  - Blood pressure increased [Recovering/Resolving]
  - Feeling abnormal [Recovering/Resolving]
  - Mental disorder [Recovering/Resolving]
  - Pain in extremity [Recovering/Resolving]
  - Polymyalgia rheumatica [Recovering/Resolving]
  - Balance disorder [Recovering/Resolving]
  - Injection site erythema [Recovered/Resolved]
  - Off label use [Unknown]
  - Movement disorder [Recovering/Resolving]
  - Dizziness [Recovering/Resolving]
  - Nausea [Recovering/Resolving]
  - Head discomfort [Recovering/Resolving]
  - Musculoskeletal stiffness [Recovering/Resolving]
  - Bradyphrenia [Recovering/Resolving]
  - Mental impairment [Recovering/Resolving]
  - Weight increased [Recovering/Resolving]
  - Limb discomfort [Recovering/Resolving]
